FAERS Safety Report 6083959-9 (Version None)
Quarter: 2009Q1

REPORT INFORMATION
  Report Type: 
  Country: None (occurrence: None)
  Receive Date: 20090217
  Receipt Date: 20090202
  Transmission Date: 20090719
  Serious: Yes (Hospitalization)
  Sender: FDA-Public Use
  Company Number: 2009S1001964

PATIENT
  Age: 57 Year
  Sex: Female

DRUGS (5)
  1. FENTANYL TRANSDERMAL SYSTEM [Suspect]
     Indication: BONE NEOPLASM MALIGNANT
     Dosage: 50 UG; EVERY HOUR; TRANSDERMAL
     Route: 062
     Dates: start: 20070101, end: 20090104
  2. FENTANYL TRANSDERMAL SYSTEM [Suspect]
     Indication: BONE NEOPLASM MALIGNANT
     Dosage: 100 UG; EVERY HOUR; TRANSDERMAL
     Route: 062
     Dates: start: 20070101
  3. OXYCODONE [Concomitant]
  4. CLONAZEPAM [Concomitant]
  5. PAXIL [Concomitant]

REACTIONS (4)
  - ANXIETY [None]
  - CONFUSIONAL STATE [None]
  - PAIN IN EXTREMITY [None]
  - WITHDRAWAL SYNDROME [None]
